FAERS Safety Report 20592475 (Version 1)
Quarter: 2022Q1

REPORT INFORMATION
  Report Type: Spontaneous
  Country: ZA (occurrence: ZA)
  Receive Date: 20220314
  Receipt Date: 20220314
  Transmission Date: 20220423
  Serious: Yes (Hospitalization)
  Sender: FDA-Public Use
  Company Number: ZA-PFIZER INC-2021456613

PATIENT
  Age: 42 Year
  Sex: Female

DRUGS (31)
  1. ENBREL [Suspect]
     Active Substance: ETANERCEPT
     Indication: Product used for unknown indication
     Dosage: 25 MG
     Route: 065
     Dates: start: 20111001
  2. HUMIRA [Suspect]
     Active Substance: ADALIMUMAB
     Indication: Product used for unknown indication
     Dosage: 40 MG
     Route: 065
     Dates: start: 20120701
  3. ACTEMRA [Suspect]
     Active Substance: TOCILIZUMAB
     Indication: Product used for unknown indication
     Dosage: 480 MG
     Route: 065
     Dates: start: 20140201
  4. LEFLUNOMIDE [Concomitant]
     Active Substance: LEFLUNOMIDE
     Dosage: 20 MG, DAILY
     Dates: start: 19960101
  5. PREDNISONE [Concomitant]
     Active Substance: PREDNISONE
     Dosage: 5 MG, DAILY
     Dates: start: 19960101
  6. PREDNISONE [Concomitant]
     Active Substance: PREDNISONE
     Dosage: 30 MG, DAILY (PO 3/7)
     Route: 048
  7. PREDNISONE [Concomitant]
     Active Substance: PREDNISONE
     Dosage: 20 MG, DAILY (PO 3/7)
     Route: 048
  8. PREDNISONE [Concomitant]
     Active Substance: PREDNISONE
     Dosage: 10 MG, DAILY (PO 3/7)
     Route: 048
  9. PREDNISONE [Concomitant]
     Active Substance: PREDNISONE
     Dosage: 5 MG, DAILY (PO 1/7)
     Route: 048
  10. ARTELAC ADVANCED [Concomitant]
     Dosage: UNK (2-4 HOURLY)
  11. BIRAL [Concomitant]
     Dosage: UNK, 1X/DAY (1 NOCTE PO)
     Route: 048
  12. MEBEVERINE [Concomitant]
     Active Substance: MEBEVERINE
     Dosage: UNK, DAILY (1 DAILY PO)
     Route: 048
  13. EXFORGE [Concomitant]
     Active Substance: AMLODIPINE BESYLATE\VALSARTAN
     Dosage: UNK, 1X/DAY (1 DAILY PO (5/160/25))
     Route: 048
  14. GABAPENTIN [Concomitant]
     Active Substance: GABAPENTIN
     Dosage: 100 MG, DAILY
     Route: 048
  15. FERROUS SULFATE [Concomitant]
     Active Substance: FERROUS SULFATE
     Dosage: UNK, DAILY (2 DAILY PO FOR 1 MONTH)
     Route: 048
  16. FERROUS SULFATE [Concomitant]
     Active Substance: FERROUS SULFATE
     Dosage: UNK, DAILY ( 1 DAILY PO)
     Route: 048
  17. GINETTE [Concomitant]
     Dosage: UNK, 1X/DAY (1 DAILY PO)
     Route: 048
  18. EZETIMIBE\SIMVASTATIN [Concomitant]
     Active Substance: EZETIMIBE\SIMVASTATIN
     Dosage: UNK, DAILY (10/20 DAILY PO)
     Route: 048
  19. ESCITALOPRAM [Concomitant]
     Active Substance: ESCITALOPRAM OXALATE
     Dosage: 5 MG, DAILY (PO 1 WEEK)
     Route: 048
  20. ESCITALOPRAM [Concomitant]
     Active Substance: ESCITALOPRAM OXALATE
     Dosage: 10 MG, DAILY
     Route: 048
  21. CYCLOBENZAPRINE HYDROCHLORIDE [Concomitant]
     Active Substance: CYCLOBENZAPRINE HYDROCHLORIDE
     Dosage: 15 MG, 2X/DAY (BD PRN PO)
     Route: 048
  22. NEORAL [Concomitant]
     Active Substance: CYCLOSPORINE
     Dosage: 50 MG, 2X/DAY
     Route: 048
  23. NEUROBION FORTE [Concomitant]
     Active Substance: CYANOCOBALAMIN\PYRIDOXINE HYDROCHLORIDE\THIAMINE DISULFIDE
     Dosage: UNK, DAILY (2 DAILY PO 1 MONTH )
  24. OMEPRAZOLE [Concomitant]
     Active Substance: OMEPRAZOLE
     Dosage: 40 MG, DAILY (PO X 10 DAYS)
     Route: 048
  25. PRAMIPEXOLE DIHYDROCHLORIDE [Concomitant]
     Active Substance: PRAMIPEXOLE DIHYDROCHLORIDE
     Dosage: 0.125 MG, 1X/DAY (NOCTE PO)
     Route: 048
  26. ACETAMINOPHEN\CAFFEINE\CODEINE PHOSPHATE\MEPROBAMATE [Concomitant]
     Active Substance: ACETAMINOPHEN\CAFFEINE\CODEINE PHOSPHATE\MEPROBAMATE
     Dosage: UNK, 2X/DAY ( 2 BD PO PRN X 14 DAYS)
     Route: 048
  27. ESOMEPRAZOLE [Concomitant]
     Active Substance: ESOMEPRAZOLE
     Dosage: 40 MG, DAILY
     Route: 048
  28. AMITRIPTYLINE [Concomitant]
     Active Substance: AMITRIPTYLINE
     Dosage: 10 MG, 1X/DAY (NOCTE PO)
     Route: 048
  29. VIMOVO [Concomitant]
     Active Substance: ESOMEPRAZOLE MAGNESIUM\NAPROXEN
     Dosage: UNK, 2X/DAY (1 BD PO)
     Route: 048
  30. VITATHION [ADENOSINE TRIPHOSPHATE, DISODIUM SALT;ASCORBIC ACID;FYTATE [Concomitant]
     Dosage: UNK, DAILY (1 SACHET DAILY PO)
     Route: 048
  31. XAILIN [Concomitant]
     Dosage: UNK, 1X/DAY (NOCTE)

REACTIONS (5)
  - Gait inability [Unknown]
  - Pain [Unknown]
  - Drug ineffective [Unknown]
  - Toxicity to various agents [Unknown]
  - Condition aggravated [Unknown]
